FAERS Safety Report 14408946 (Version 2)
Quarter: 2018Q2

REPORT INFORMATION
  Report Type: Report from Study
  Country: IT (occurrence: IT)
  Receive Date: 20180119
  Receipt Date: 20180427
  Transmission Date: 20180711
  Serious: Yes (Death, Other)
  Sender: FDA-Public Use
  Company Number: IT-ROCHE-2055010

PATIENT
  Age: 95 Year
  Sex: Male
  Weight: 71 kg

DRUGS (8)
  1. ALLOPURINOLO [Concomitant]
     Active Substance: ALLOPURINOL
     Route: 048
  2. ATEZOLIZUMAB. [Suspect]
     Active Substance: ATEZOLIZUMAB
     Indication: BLADDER CANCER
     Route: 042
     Dates: start: 20171031, end: 20180102
  3. PLASIL [Concomitant]
     Active Substance: METOCLOPRAMIDE HYDROCHLORIDE
     Route: 048
  4. ALKERAN [Concomitant]
     Active Substance: MELPHALAN
  5. MYCOSTATIN [Concomitant]
     Active Substance: NYSTATIN
     Route: 048
  6. RETACRIT [Concomitant]
     Active Substance: EPOETIN ALFA-EPBX
     Route: 042
  7. DICLOREUM [Concomitant]
     Active Substance: DICLOFENAC SODIUM
     Route: 048
  8. PREDNISONE. [Concomitant]
     Active Substance: PREDNISONE

REACTIONS (4)
  - Disease progression [Unknown]
  - Dyspnoea [Fatal]
  - Pelvic fracture [Unknown]
  - Lethargy [Fatal]

NARRATIVE: CASE EVENT DATE: 20180110
